FAERS Safety Report 16213709 (Version 1)
Quarter: 2019Q2

REPORT INFORMATION
  Report Type: Spontaneous
  Country: IN (occurrence: IN)
  Receive Date: 20190418
  Receipt Date: 20190418
  Transmission Date: 20190711
  Serious: Yes (Other)
  Sender: FDA-Public Use
  Company Number: IN-PFIZER INC-2018425066

PATIENT
  Age: 84 Year
  Sex: Female

DRUGS (1)
  1. AROMASIN [Suspect]
     Active Substance: EXEMESTANE
     Indication: BREAST CANCER FEMALE
     Dosage: 25 MG, ONCE DAILY
     Route: 048
     Dates: start: 20180918, end: 20190408

REACTIONS (2)
  - Pulmonary oedema [Unknown]
  - Skin disorder [Recovered/Resolved]
